FAERS Safety Report 8584099 (Version 4)
Quarter: 2014Q1

REPORT INFORMATION
  Report Type: Report from Study
  Country: US (occurrence: US)
  Receive Date: 20120529
  Receipt Date: 20140327
  Transmission Date: 20141002
  Serious: Yes (Death, Hospitalization)
  Sender: FDA-Public Use
  Company Number: US-ROCHE-1063140

PATIENT
  Age: 69 Year
  Sex: Female

DRUGS (12)
  1. BEVACIZUMAB [Suspect]
     Indication: RENAL CELL CARCINOMA
     Route: 065
     Dates: start: 20120322
  2. MDX-1106 [Suspect]
     Indication: RENAL CELL CARCINOMA
     Route: 042
     Dates: start: 20120110, end: 20120221
  3. AXITINIB [Suspect]
     Indication: RENAL CELL CARCINOMA
     Route: 048
     Dates: start: 20120229, end: 20120311
  4. CALCITRIOL [Concomitant]
     Route: 065
     Dates: start: 20111222
  5. CALCIUM CARBONATE [Concomitant]
     Route: 065
     Dates: start: 20111222
  6. ALLOPURINOL [Concomitant]
     Route: 065
     Dates: start: 20111228
  7. OMEPRAZOL [Concomitant]
     Route: 065
     Dates: start: 20120111
  8. ZANTAC [Concomitant]
     Route: 065
     Dates: start: 20120128
  9. TYLENOL PM [Concomitant]
     Route: 065
     Dates: start: 201106
  10. VYTORIN [Concomitant]
     Route: 065
     Dates: start: 2008
  11. SYNTHROID [Concomitant]
     Route: 065
     Dates: start: 2006
  12. LOVENOX [Concomitant]
     Route: 065
     Dates: start: 20111220

REACTIONS (11)
  - Malignant neoplasm progression [Fatal]
  - Aspartate aminotransferase increased [Not Recovered/Not Resolved]
  - Alanine aminotransferase increased [Recovered/Resolved]
  - Blood alkaline phosphatase increased [Not Recovered/Not Resolved]
  - Blood bilirubin increased [Recovered/Resolved]
  - Renal failure acute [Not Recovered/Not Resolved]
  - Hyponatraemia [Recovered/Resolved]
  - Toxicity to various agents [Recovered/Resolved]
  - Back pain [Recovered/Resolved]
  - Blood creatinine increased [Recovered/Resolved]
  - Urinary tract infection [Recovered/Resolved]
